FAERS Safety Report 9014213 (Version 1)
Quarter: 2013Q1

REPORT INFORMATION
  Report Type: Spontaneous
  Country: US (occurrence: US)
  Receive Date: 20130115
  Receipt Date: 20130115
  Transmission Date: 20140127
  Serious: Yes (Life-Threatening, Hospitalization, Other)
  Sender: FDA-Public Use
  Company Number: US-009507513-1301USA003442

PATIENT
  Age: 64 Year
  Sex: Male

DRUGS (9)
  1. MONTELUKAST SODIUM [Suspect]
     Route: 042
  2. METHYLPREDNISOLONE [Suspect]
     Route: 042
  3. IVERMECTIN [Suspect]
     Dosage: 18 MG, UNK
     Route: 048
  4. IPRATROPIUM BROMIDE [Suspect]
     Dosage: INHALATION
     Route: 055
  5. PREDNISONE [Suspect]
     Dosage: 10 MG, UNK
     Route: 048
  6. FLUTICASONE PROPIONATE (+) SALMETEROL XINAFOATE [Suspect]
     Dosage: INHALATION
     Route: 055
  7. PANTOPRAZOLE [Concomitant]
     Indication: BRONCHIAL HYPERREACTIVITY
  8. ASPIRIN [Concomitant]
     Indication: STRONGYLOIDIASIS
  9. ALBUTEROL [Concomitant]
     Dosage: INHALATION
     Route: 055

REACTIONS (14)
  - Vomiting [Unknown]
  - Strongyloidiasis [Unknown]
  - Sepsis [Unknown]
  - Pyrexia [Unknown]
  - Pneumonia [Unknown]
  - Pancreatitis [Unknown]
  - Nausea [Unknown]
  - Escherichia infection [Unknown]
  - Dyspnoea [Unknown]
  - Disorientation [Unknown]
  - Confusional state [Unknown]
  - Alpha haemolytic streptococcal infection [Unknown]
  - Acute lung injury [Unknown]
  - Abdominal pain [Unknown]
